FAERS Safety Report 10668487 (Version 1)
Quarter: 2014Q4

REPORT INFORMATION
  Report Type: Spontaneous
  Country: CH (occurrence: CH)
  Receive Date: 20141222
  Receipt Date: 20141222
  Transmission Date: 20150529
  Serious: Yes (Hospitalization)
  Sender: FDA-Public Use
  Company Number: CH-TEVA-529966ISR

PATIENT
  Age: 61 Year
  Sex: Female

DRUGS (7)
  1. BECOZYM [Concomitant]
     Active Substance: VITAMINS
     Route: 065
  2. CO DIOVAN [Concomitant]
     Route: 065
  3. ATORVASTATIN [Concomitant]
     Active Substance: ATORVASTATIN
     Route: 065
  4. IRFEN 400 [Suspect]
     Active Substance: IBUPROFEN
     Indication: ANALGESIC THERAPY
     Dosage: 800 MILLIGRAM DAILY;
     Route: 048
     Dates: start: 2014, end: 201411
  5. CONCOR [Concomitant]
     Active Substance: BISOPROLOL FUMARATE
     Route: 065
  6. ESOMEP [Concomitant]
     Active Substance: ESOMEPRAZOLE
     Route: 065
  7. ASPIRIN CARDIO [Suspect]
     Active Substance: ASPIRIN
     Indication: CORONARY ARTERY DISEASE
     Dosage: 100 MILLIGRAM DAILY;
     Route: 048
     Dates: start: 2014, end: 201411

REACTIONS (7)
  - Encephalopathy [Recovered/Resolved]
  - Injury [Unknown]
  - Haematemesis [Recovered/Resolved]
  - Nervous system disorder [Recovered/Resolved]
  - Haemorrhagic anaemia [Recovered/Resolved]
  - Upper gastrointestinal haemorrhage [Recovered/Resolved]
  - Fall [Unknown]

NARRATIVE: CASE EVENT DATE: 2014
